FAERS Safety Report 7967134-6 (Version None)
Quarter: 2011Q4

REPORT INFORMATION
  Report Type: 
  Country: None (occurrence: None)
  Receive Date: 20111209
  Receipt Date: 20111207
  Transmission Date: 20120403
  Serious: Yes (Hospitalization)
  Sender: FDA-Public Use
  Company Number: FR-PFIZER INC-K201100505

PATIENT
  Age: 81 Year
  Sex: Female

DRUGS (11)
  1. BUDESONIDE [Suspect]
     Dosage: UNK
     Route: 055
  2. RAMIPRIL [Suspect]
     Dosage: UNK
     Route: 055
  3. PREDNISOLONE [Suspect]
     Indication: ASTHMA
     Dosage: UNK
  4. PRAVASTATIN [Suspect]
     Indication: HYPERCHOLESTEROLAEMIA
     Dosage: UNK
  5. PREVISCAN [Suspect]
     Dosage: UNK
  6. IPRATROPIUM [Concomitant]
     Indication: DYSPNOEA
     Dosage: UNK
     Dates: start: 20110315
  7. TERBUTALINE [Concomitant]
     Indication: DYSPNOEA
     Dosage: UNK
     Dates: start: 20110315
  8. VENTOLIN [Suspect]
     Dosage: UNK
  9. PULMICORT [Suspect]
     Dosage: UNK
     Route: 055
  10. LASIX [Suspect]
     Dosage: UNK
  11. DILTIAZEM HCL [Suspect]
     Dosage: UNK

REACTIONS (3)
  - LIPASE ABNORMAL [None]
  - OEDEMATOUS PANCREATITIS [None]
  - BLOOD AMYLASE INCREASED [None]
